FAERS Safety Report 22531720 (Version 1)
Quarter: 2023Q2

REPORT INFORMATION
  Report Type: Spontaneous
  Country: US (occurrence: US)
  Receive Date: 20230607
  Receipt Date: 20230607
  Transmission Date: 20230722
  Serious: Yes (Hospitalization, Other)
  Sender: FDA-Public Use
  Company Number: US-drreddys-LIT/USA/23/0166269

PATIENT
  Age: 72 Year
  Sex: Male

DRUGS (3)
  1. CYCLOSPORINE [Suspect]
     Active Substance: CYCLOSPORINE
     Indication: Immunosuppression
  2. TACROLIMUS [Suspect]
     Active Substance: TACROLIMUS
     Indication: Immunosuppression
  3. MYCOPHENOLATE MOFETIL [Suspect]
     Active Substance: MYCOPHENOLATE MOFETIL
     Indication: Immunosuppression

REACTIONS (7)
  - Mental status changes [Recovering/Resolving]
  - Pleocytosis [Unknown]
  - JC virus CSF test positive [Unknown]
  - Muscle twitching [Unknown]
  - Muscle twitching [Unknown]
  - Dysphagia [Unknown]
  - Hiccups [Recovering/Resolving]
